FAERS Safety Report 22045886 (Version 3)
Quarter: 2024Q2

REPORT INFORMATION
  Report Type: Report from Study
  Country: AU (occurrence: AU)
  Receive Date: 20230228
  Receipt Date: 20240515
  Transmission Date: 20240716
  Serious: Yes (Hospitalization, Other)
  Sender: FDA-Public Use
  Company Number: AU-MYLANLABS-2023M1019566

PATIENT
  Age: 85 Year
  Sex: Female

DRUGS (35)
  1. BISOPROLOL [Suspect]
     Active Substance: BISOPROLOL\BISOPROLOL FUMARATE
     Indication: Atrial fibrillation
     Dosage: UNK
     Route: 065
     Dates: start: 20200716, end: 20210711
  2. BISOPROLOL [Suspect]
     Active Substance: BISOPROLOL\BISOPROLOL FUMARATE
     Indication: Cardiac failure
     Dosage: 2.5 MILLIGRAM, QD
     Route: 048
     Dates: start: 20201014, end: 20210721
  3. BISOPROLOL [Suspect]
     Active Substance: BISOPROLOL\BISOPROLOL FUMARATE
     Dosage: 7.5 MILLIGRAM, QD
     Route: 048
  4. ONDANSETRON [Suspect]
     Active Substance: ONDANSETRON
     Indication: Product used for unknown indication
     Dosage: UNK
     Route: 065
  5. PREGABALIN [Suspect]
     Active Substance: PREGABALIN
     Indication: Back pain
     Dosage: 75 MILLIGRAM, BID (150 MG)
     Route: 048
     Dates: start: 2010
  6. METHADONE [Suspect]
     Active Substance: METHADONE HYDROCHLORIDE
     Indication: Product used for unknown indication
     Dosage: 2.5 MILLIGRAM, QD (2.5 MG,IN THE EVENING)
     Route: 065
  7. TAPENTADOL [Suspect]
     Active Substance: TAPENTADOL
     Indication: Back pain
     Dosage: 200 MILLIGRAM, QD
     Route: 048
     Dates: start: 2010, end: 202107
  8. MIDODRINE [Suspect]
     Active Substance: MIDODRINE
     Indication: Cardiac failure
     Dosage: 5 MILLIGRAM, TID
     Route: 048
     Dates: start: 202102
  9. PREGABALIN [Concomitant]
     Active Substance: PREGABALIN
     Indication: Back pain
     Dosage: 75 MILLIGRAM, BID
     Route: 048
     Dates: start: 2010
  10. TAPENTADOL [Concomitant]
     Active Substance: TAPENTADOL
     Indication: Back pain
     Dosage: 200 MILLIGRAM, QD
     Route: 048
     Dates: start: 2010, end: 202107
  11. BISOPROLOL [Concomitant]
     Active Substance: BISOPROLOL\BISOPROLOL FUMARATE
     Indication: Atrial fibrillation
     Dosage: 2.5 MILLIGRAM, QD
     Route: 048
     Dates: start: 20201014, end: 20210721
  12. BISOPROLOL [Concomitant]
     Active Substance: BISOPROLOL\BISOPROLOL FUMARATE
     Indication: Cardiac failure
     Dosage: 7.5 MILLIGRAM, QD
     Route: 048
     Dates: start: 20210722
  13. METHADONE [Concomitant]
     Active Substance: METHADONE HYDROCHLORIDE
     Indication: Product used for unknown indication
     Dosage: 2.5 MILLIGRAM, QD (2.5 MILLIGRAM IN THE EVENING)
     Route: 065
  14. MIDODRINE [Concomitant]
     Active Substance: MIDODRINE
     Indication: Cardiac failure
     Dosage: 5 MILLIGRAM, TID (START DATE: ??-FEB-2021)
     Route: 048
  15. APIXABAN [Concomitant]
     Active Substance: APIXABAN
     Indication: Atrial fibrillation
     Dosage: 5 MILLIGRAM, BID
     Route: 048
     Dates: start: 2010, end: 202107
  16. SPIRONOLACTONE [Concomitant]
     Active Substance: SPIRONOLACTONE
     Indication: Cardiac failure
     Dosage: 12.5 MILLIGRAM, QD
     Route: 048
     Dates: start: 20210221, end: 2021
  17. FUROSEMIDE [Concomitant]
     Active Substance: FUROSEMIDE
     Indication: Cardiac failure
     Dosage: 40 MILLIGRAM, BID
     Route: 048
     Dates: start: 20210609
  18. MOMETASONE [Concomitant]
     Active Substance: MOMETASONE
     Indication: Chronic obstructive pulmonary disease
     Dosage: 1 DOSAGE FORM, QD (1 SPRAY DOSE)
     Route: 045
     Dates: start: 2020
  19. CHOLECALCIFEROL [Concomitant]
     Active Substance: CHOLECALCIFEROL
     Indication: Osteoporosis
     Dosage: 25 MICROGRAM, QD
     Route: 065
  20. MAGNESIUM ASPARTATE [Concomitant]
     Active Substance: MAGNESIUM ASPARTATE
     Indication: Product used for unknown indication
     Dosage: 500 MILLIGRAM, QD (BED TIME)
     Route: 048
  21. DENOSUMAB [Concomitant]
     Active Substance: DENOSUMAB
     Indication: Product used for unknown indication
     Dosage: 60 MILLIGRAM PER MILLILITRE ONCE EVERY 6 MONTHS
     Route: 058
  22. MOVICOL [Concomitant]
     Active Substance: POLYETHYLENE GLYCOL 3350\POTASSIUM CHLORIDE\SODIUM BICARBONATE\SODIUM CHLORIDE
     Indication: Prophylaxis
     Dosage: 1 DOSAGE FORM (1 SACHET)
     Route: 048
  23. PANTOPRAZOLE [Concomitant]
     Active Substance: PANTOPRAZOLE
     Indication: Prophylaxis
     Dosage: 20 MILLIGRAM, QD
     Route: 048
  24. ACETAMINOPHEN [Concomitant]
     Active Substance: ACETAMINOPHEN
     Indication: Product used for unknown indication
     Dosage: 1330 MILLIGRAM, QD MG UP TO THREE TIMES (AS NEEDED (PRN))
     Route: 048
  25. POTASSIUM CHLORIDE [Concomitant]
     Active Substance: POTASSIUM CHLORIDE
     Indication: Product used for unknown indication
     Dosage: 1200 MILLIGRAM, BID
     Route: 048
  26. UBIDECARENONE [Concomitant]
     Active Substance: UBIDECARENONE
     Indication: Product used for unknown indication
     Dosage: 150 MILLIGRAM, QD
     Route: 048
  27. ASCORBIC ACID\CUPRIC OXIDE\TOCOPHERSOLAN\ZINC OXIDE [Concomitant]
     Active Substance: ASCORBIC ACID\CUPRIC OXIDE\TOCOPHERSOLAN\ZINC OXIDE
     Indication: Product used for unknown indication
     Dosage: 1 DOSAGE FORM, QD
     Route: 048
  28. MAGNESIUM [Concomitant]
     Active Substance: MAGNESIUM
     Indication: Atrial fibrillation
     Dosage: UNK
     Route: 042
  29. MAGNESIUM [Concomitant]
     Active Substance: MAGNESIUM
     Indication: Acute myocardial infarction
  30. METOPROLOL [Concomitant]
     Active Substance: METOPROLOL
     Indication: Atrial fibrillation
     Dosage: 50 MILLIGRAM, QD
     Route: 048
  31. METOPROLOL [Concomitant]
     Active Substance: METOPROLOL
     Indication: Acute myocardial infarction
  32. DIGOXIN [Concomitant]
     Active Substance: DIGOXIN
     Indication: Atrial fibrillation
     Dosage: 500 MICROGRAM, QD
     Route: 048
  33. DIGOXIN [Concomitant]
     Active Substance: DIGOXIN
     Indication: Acute myocardial infarction
  34. ENOXAPARIN SODIUM [Concomitant]
     Active Substance: ENOXAPARIN SODIUM
     Indication: Thrombosis prophylaxis
     Dosage: 160 MILLIGRAM, QD
     Route: 048
  35. ENOXAPARIN SODIUM [Concomitant]
     Active Substance: ENOXAPARIN SODIUM
     Indication: Supplementation therapy

REACTIONS (16)
  - Fall [Unknown]
  - Ankle fracture [Recovered/Resolved]
  - Troponin increased [Recovered/Resolved]
  - Atrial fibrillation [Recovered/Resolved]
  - Orthostatic hypotension [Unknown]
  - Dizziness [Unknown]
  - Balance disorder [Unknown]
  - Therapy interrupted [Unknown]
  - Acute myocardial infarction [Recovered/Resolved]
  - Pulmonary hypertension [Unknown]
  - Right ventricular dilatation [Unknown]
  - Right atrial dilatation [Unknown]
  - Iron deficiency [Unknown]
  - Blood creatinine increased [Recovering/Resolving]
  - Blood urea increased [Recovered/Resolved]
  - Off label use [Unknown]

NARRATIVE: CASE EVENT DATE: 20210216
